FAERS Safety Report 8790951 (Version 1)
Quarter: 2012Q4

REPORT INFORMATION
  Report Type: Spontaneous
  Country: US (occurrence: None)
  Receive Date: 20120907
  Receipt Date: 20120907
  Transmission Date: 20130627
  Serious: Yes (Hospitalization)
  Sender: FDA-Public Use
  Company Number: 2012P1055689

PATIENT
  Age: 34 Year
  Sex: Male

DRUGS (1)
  1. ATROPINE [Suspect]
     Route: 048

REACTIONS (16)
  - Intentional drug misuse [None]
  - Intentional self-injury [None]
  - Fall [None]
  - Mental status changes [None]
  - Incoherent [None]
  - Aggression [None]
  - Sinus tachycardia [None]
  - Sedation [None]
  - Agitation [None]
  - Blood pressure systolic increased [None]
  - Respiratory rate increased [None]
  - Oxygen saturation decreased [None]
  - Flushing [None]
  - Dry mouth [None]
  - Mydriasis [None]
  - Body temperature increased [None]
